FAERS Safety Report 25621159 (Version 1)
Quarter: 2025Q3

REPORT INFORMATION
  Report Type: Spontaneous
  Country: EU (occurrence: EU)
  Receive Date: 20250730
  Receipt Date: 20250730
  Transmission Date: 20251021
  Serious: Yes (Hospitalization, Other)
  Sender: AUROBINDO
  Company Number: EU-NOVOPROD-1476867

PATIENT
  Age: 72 Year
  Sex: Female
  Weight: 65 kg

DRUGS (7)
  1. METFORMIN [Suspect]
     Active Substance: METFORMIN HYDROCHLORIDE
     Indication: Type 2 diabetes mellitus
     Dosage: UNK, ONCE A DAY (1000 (NO UNIT REPORTED),QD)
     Route: 048
  2. INSULIN ICODEC [Suspect]
     Active Substance: INSULIN ICODEC
     Indication: Type 2 diabetes mellitus
     Dosage: 700 INTERNATIONAL UNIT, EVERY WEEK
     Route: 058
     Dates: start: 20241210, end: 20250625
  3. SITAGLIPTIN [Concomitant]
     Active Substance: SITAGLIPTIN
     Indication: Type 2 diabetes mellitus
     Dosage: 50 MILLIGRAM, ONCE A DAY
     Route: 048
     Dates: start: 2016
  4. DAPAGLIFLOZIN [Concomitant]
     Active Substance: DAPAGLIFLOZIN
     Indication: Type 2 diabetes mellitus
     Dosage: 10 MILLIGRAM, ONCE A DAY
     Route: 048
     Dates: start: 2021
  5. ALENDRONIC ACID [Concomitant]
     Active Substance: ALENDRONIC ACID
     Indication: Product used for unknown indication
     Dosage: 70 MILLIGRAM, EVERY WEEK
     Route: 065
  6. DICLOFENAC [Concomitant]
     Active Substance: DICLOFENAC
     Indication: Product used for unknown indication
     Dosage: 139.64 MILLIGRAM, ONCE A DAY
     Route: 065
  7. METAMIZOLE [Concomitant]
     Active Substance: METAMIZOLE
     Indication: Product used for unknown indication
     Dosage: 1500 MILLIGRAM, ONCE A DAY
     Route: 065

REACTIONS (7)
  - Liver function test increased [Not Recovered/Not Resolved]
  - Gastritis haemorrhagic [Not Recovered/Not Resolved]
  - Hepatitis toxic [Unknown]
  - Gastric pH increased [Not Recovered/Not Resolved]
  - Hiatus hernia [Unknown]
  - Spinal osteoarthritis [Unknown]
  - Hyperglycaemia [Unknown]

NARRATIVE: CASE EVENT DATE: 20250601
